FAERS Safety Report 13624788 (Version 2)
Quarter: 2017Q2

REPORT INFORMATION
  Report Type: Spontaneous
  Country: US (occurrence: US)
  Receive Date: 20170607
  Receipt Date: 20170615
  Transmission Date: 20170830
  Serious: Yes (Hospitalization, Other)
  Sender: FDA-Public Use
  Company Number: US-RECKITT BENCKISER HEALTHCARE INT LIMITED-RB-87723-2017

PATIENT
  Sex: Male

DRUGS (2)
  1. ROBITUSSIN (GUAIFENESIN) [Concomitant]
     Active Substance: GUAIFENESIN
     Indication: PRODUCT USED FOR UNKNOWN INDICATION
     Dosage: UNK
     Route: 065
  2. DELSYM [Suspect]
     Active Substance: DEXTROMETHORPHAN
     Indication: DRUG USE DISORDER
     Dosage: DRINKS A WHOLE BOTTLE TWICE A DAY SOMETIMES THREE TIMES A DAY
     Route: 048
     Dates: end: 20170531

REACTIONS (3)
  - Unevaluable event [Not Recovered/Not Resolved]
  - Drug use disorder [Not Recovered/Not Resolved]
  - Intentional overdose [Not Recovered/Not Resolved]
